FAERS Safety Report 18192220 (Version 1)
Quarter: 2020Q3

REPORT INFORMATION
  Report Type: Spontaneous
  Country: US (occurrence: US)
  Receive Date: 20200825
  Receipt Date: 20200825
  Transmission Date: 20201103
  Serious: No
  Sender: FDA-Public Use
  Company Number: US-PFIZER INC-2020326167

PATIENT
  Age: 53 Year
  Sex: Male
  Weight: 92.97 kg

DRUGS (3)
  1. INLYTA [Suspect]
     Active Substance: AXITINIB
     Indication: RENAL CANCER
     Dosage: 7 MG, 2X/DAY (5 MG AND 1 MG TABLETS)
     Route: 048
     Dates: start: 202005
  2. GARLIC [ALLIUM SATIVUM] [Concomitant]
     Active Substance: GARLIC
     Dosage: 1000 MG
  3. BROCCOLI [BRASSICA OLERACEA] [Concomitant]
     Dosage: 500 MG

REACTIONS (1)
  - Liver function test increased [Recovered/Resolved]

NARRATIVE: CASE EVENT DATE: 2020
